FAERS Safety Report 8474237-9 (Version None)
Quarter: 2012Q2

REPORT INFORMATION
  Report Type: 
  Country: None (occurrence: None)
  Receive Date: 20120628
  Receipt Date: 20120618
  Transmission Date: 20120825
  Serious: Yes (Hospitalization)
  Sender: FDA-Public Use
  Company Number: US-SANOFI-AVENTIS-2012SA042267

PATIENT
  Age: 45 Year
  Sex: Male
  Weight: 90.25 kg

DRUGS (15)
  1. DOCETAXEL [Suspect]
     Indication: NON-SMALL CELL LUNG CANCER STAGE IV
     Dosage: 75/M2 EVERY THREE WEEKS.
     Route: 041
     Dates: start: 20111206, end: 20111206
  2. DECADRON [Concomitant]
     Dates: start: 20111207
  3. PHENERGAN HCL [Concomitant]
     Indication: NAUSEA
     Dates: start: 20110830
  4. KLOR-CON [Concomitant]
     Dates: start: 20110927
  5. BLINDED THERAPY [Suspect]
     Route: 041
     Dates: start: 20120502, end: 20120502
  6. PERCOCET [Concomitant]
     Indication: PAIN
     Dates: start: 20110825
  7. MULTI-VITAMINS [Concomitant]
     Indication: NUTRITIONAL SUPPORT
     Dates: start: 20120307
  8. VITAMIN B-12 [Concomitant]
     Indication: NUTRITIONAL SUPPORT
     Dates: start: 20120307
  9. BLINDED THERAPY [Suspect]
     Indication: NON-SMALL CELL LUNG CANCER STAGE IV
     Route: 041
     Dates: start: 20111206, end: 20111206
  10. MARINOL [Concomitant]
     Dates: start: 20110927
  11. SYNTHROID [Concomitant]
     Indication: THYROID DISORDER
     Dates: start: 20110726
  12. PRILOSEC [Concomitant]
     Dates: start: 20111213
  13. DOCETAXEL [Suspect]
     Dosage: TOOK 75/M2 EVERY THREE WEEKS.
     Route: 041
     Dates: start: 20120502, end: 20120502
  14. FOLIC ACID [Concomitant]
     Indication: NUTRITIONAL SUPPORT
     Dates: start: 20120307
  15. ASCORBIC ACID [Concomitant]
     Indication: NUTRITIONAL SUPPORT
     Dates: start: 20120307

REACTIONS (4)
  - ATRIAL FIBRILLATION [None]
  - TOXIC ENCEPHALOPATHY [None]
  - ANKLE FRACTURE [None]
  - ACUTE RESPIRATORY FAILURE [None]
